FAERS Safety Report 5556885-9 (Version None)
Quarter: 2007Q4

REPORT INFORMATION
  Report Type: 
  Country: None (occurrence: None)
  Receive Date: 20071214
  Receipt Date: 20071204
  Transmission Date: 20080405
  Serious: Yes (Disabling)
  Sender: FDA-Public Use
  Company Number: GB-ABBOTT-07P-167-0427369-00

PATIENT
  Age: 5 Year
  Sex: Female

DRUGS (6)
  1. VALPROATE SODIUM [Suspect]
     Indication: EPILEPSY
     Route: 048
  2. VALPROATE SODIUM [Suspect]
  3. BACLOFEN [Concomitant]
     Indication: MUSCLE SPASTICITY
     Route: 048
     Dates: start: 20030101
  4. LAMOTRIGINE [Concomitant]
     Indication: EPILEPSY
     Route: 048
     Dates: start: 20020101
  5. PHENOBARBITAL TAB [Concomitant]
     Indication: EPILEPSY
     Route: 048
     Dates: start: 20020101
  6. VIGABATRIN [Concomitant]
     Indication: EPILEPSY
     Route: 048
     Dates: start: 20040101

REACTIONS (1)
  - GINGIVAL HYPERTROPHY [None]
